FAERS Safety Report 15888163 (Version 3)
Quarter: 2019Q1

REPORT INFORMATION
  Report Type: Report from Study
  Country: JP (occurrence: JP)
  Receive Date: 20190130
  Receipt Date: 20190314
  Transmission Date: 20190417
  Serious: Yes (Other)
  Sender: FDA-Public Use
  Company Number: JP-ROCHE-2254849

PATIENT
  Age: 73 Year
  Sex: Male
  Weight: 76 kg

DRUGS (5)
  1. METHYCOBAL [Concomitant]
     Active Substance: METHYLCOBALAMIN
     Route: 048
  2. ZOLEDRONIC ACID MONOHYDRATE [Concomitant]
     Active Substance: ZOLEDRONIC ACID
     Dosage: DOSAGE IS UNCERTAIN.
     Route: 041
     Dates: start: 20180907
  3. TSUMURA GOSHAJINKIGAN [Concomitant]
     Active Substance: HERBALS
     Route: 048
  4. ATEZOLIZUMAB. [Suspect]
     Active Substance: ATEZOLIZUMAB
     Indication: LUNG ADENOCARCINOMA
     Route: 041
     Dates: start: 20180907
  5. LYRICA [Concomitant]
     Active Substance: PREGABALIN
     Route: 048

REACTIONS (2)
  - Vertigo [Recovering/Resolving]
  - Asthenia [Recovered/Resolved]

NARRATIVE: CASE EVENT DATE: 20180919
